FAERS Safety Report 17541447 (Version 2)
Quarter: 2020Q2

REPORT INFORMATION
  Report Type: Spontaneous
  Country: US (occurrence: US)
  Receive Date: 20200313
  Receipt Date: 20200518
  Transmission Date: 20200713
  Serious: Yes (Hospitalization, Other)
  Sender: FDA-Public Use
  Company Number: US-ASTRAZENECA-2020SE35960

PATIENT
  Age: 470 Day
  Sex: Female
  Weight: 8.9 kg

DRUGS (5)
  1. MULTIVITAMIN [Concomitant]
     Active Substance: VITAMINS
  2. TAMIFLU [Concomitant]
     Active Substance: OSELTAMIVIR PHOSPHATE
  3. SYNAGIS [Suspect]
     Active Substance: PALIVIZUMAB
     Indication: PREMATURE BABY
     Dosage: 50MG/0.5ML 50 MG MONTHLY
     Route: 030
     Dates: start: 20191202
  4. EPINEPHRINE HCL [Concomitant]
     Active Substance: EPINEPHRINE
  5. AMOXICILLIN. [Concomitant]
     Active Substance: AMOXICILLIN

REACTIONS (5)
  - Status epilepticus [Unknown]
  - Gastroenteritis [Unknown]
  - Influenza [Unknown]
  - Otitis media acute [Unknown]
  - Febrile convulsion [Recovered/Resolved]

NARRATIVE: CASE EVENT DATE: 20200120
